FAERS Safety Report 9271179 (Version 1)
Quarter: 2013Q2

REPORT INFORMATION
  Report Type: Report from Study
  Country: BD (occurrence: BD)
  Receive Date: 20130506
  Receipt Date: 20130506
  Transmission Date: 20140414
  Serious: Yes (Hospitalization)
  Sender: FDA-Public Use
  Company Number: PHHY2013BD041050

PATIENT
  Age: 65 Year
  Sex: Female

DRUGS (1)
  1. ACLASTA [Suspect]
     Indication: OSTEOPOROSIS
     Dosage: ONCE YEARLY
     Route: 042
     Dates: start: 20130309

REACTIONS (5)
  - Fluid retention [Unknown]
  - Diarrhoea [Unknown]
  - Asthenia [Unknown]
  - Hypotension [Unknown]
  - Malaise [Recovering/Resolving]
